FAERS Safety Report 24320123 (Version 1)
Quarter: 2024Q3

REPORT INFORMATION
  Report Type: Spontaneous
  Country: US (occurrence: US)
  Receive Date: 20240914
  Receipt Date: 20240914
  Transmission Date: 20241016
  Serious: No
  Sender: AMGEN
  Company Number: US-AMGEN-USASP2024183901

PATIENT
  Sex: Female

DRUGS (1)
  1. MVASI [Suspect]
     Active Substance: BEVACIZUMAB-AWWB
     Indication: Product used for unknown indication
     Dosage: ( DOSE ORDERED: 1400MG,  DOSE REQUESTED: 1400MG ) ( 3 X 400MG, 2 X 100MG VIALS)
     Route: 065

REACTIONS (1)
  - Product dose omission issue [Unknown]
